FAERS Safety Report 5114710-4 (Version None)
Quarter: 2006Q3

REPORT INFORMATION
  Report Type: 
  Country: None (occurrence: None)
  Receive Date: 20060922
  Receipt Date: 20060922
  Transmission Date: 20061208
  Serious: Yes (Hospitalization)
  Sender: FDA-Public Use
  Company Number: None

PATIENT
  Age: 68 Year
  Sex: Male
  Weight: 78.4723 kg

DRUGS (14)
  1. FINASTERIDE [Suspect]
     Indication: HYPERTENSION
     Dosage: 5 MG   DAILY   PO
     Route: 048
     Dates: start: 20060125, end: 20060912
  2. MECLIZINE [Suspect]
     Indication: DIZZINESS
     Dosage: 25 MG  BID  PO
     Route: 048
     Dates: start: 20050927, end: 20060912
  3. ACETAMINOPHEN [Concomitant]
  4. AMIODARONE HCL [Concomitant]
  5. ASPIRIN [Concomitant]
  6. FERROUS SULFATE TAB [Concomitant]
  7. FINASTERIDE [Concomitant]
  8. HYDRALAZINE [Concomitant]
  9. MECLIZINE [Concomitant]
  10. METOPROLOL TARTRATE [Concomitant]
  11. PANTOPRAZOLE SODIUM [Concomitant]
  12. SEVELAMER [Concomitant]
  13. SIMVASTATIN [Concomitant]
  14. TEMAZEPAM [Concomitant]

REACTIONS (3)
  - ASTHENIA [None]
  - HYPOTENSION [None]
  - POST PROCEDURAL COMPLICATION [None]
